FAERS Safety Report 9311702 (Version 1)
Quarter: 2013Q2

REPORT INFORMATION
  Report Type: Report from Study
  Country: ES (occurrence: ES)
  Receive Date: 20130528
  Receipt Date: 20130528
  Transmission Date: 20140414
  Serious: Yes (Hospitalization)
  Sender: FDA-Public Use
  Company Number: ES-SANOFI-AVENTIS-2013SA050566

PATIENT
  Age: 78 Year
  Sex: Female

DRUGS (5)
  1. SEGURIL [Suspect]
     Indication: RENAL FAILURE CHRONIC
     Route: 048
     Dates: end: 20120508
  2. ENALAPRIL [Interacting]
     Indication: PROTEINURIA
     Route: 048
     Dates: start: 201111, end: 20120508
  3. ALDACTONE [Interacting]
     Indication: RENAL FAILURE CHRONIC
     Route: 048
     Dates: end: 20120508
  4. ALDOCUMAR [Concomitant]
     Indication: ATRIAL FIBRILLATION
     Route: 048
     Dates: end: 20120508
  5. DIGOXIN [Concomitant]
     Indication: ATRIAL FIBRILLATION
     Route: 048
     Dates: end: 20120508

REACTIONS (4)
  - Renal failure acute [Recovered/Resolved]
  - Drug interaction [Unknown]
  - Hyponatraemia [Recovered/Resolved]
  - Hyperkalaemia [Recovered/Resolved]
